FAERS Safety Report 21989209 (Version 2)
Quarter: 2023Q4

REPORT INFORMATION
  Report Type: Spontaneous
  Country: IT (occurrence: IT)
  Receive Date: 20230214
  Receipt Date: 20231218
  Transmission Date: 20240109
  Serious: Yes (Other)
  Sender: FDA-Public Use
  Company Number: IT-009507513-2302ITA000065

PATIENT
  Age: 45 Year
  Sex: Female

DRUGS (7)
  1. PACLITAXEL [Suspect]
     Active Substance: PACLITAXEL
     Indication: Breast cancer
     Dosage: 290 MG, Q3W
     Route: 042
  2. CARBOPLATIN [Suspect]
     Active Substance: CARBOPLATIN
     Indication: Breast cancer
     Dosage: 590 MG, Q3W
     Route: 042
  3. PEMBROLIZUMAB [Suspect]
     Active Substance: PEMBROLIZUMAB
     Indication: Breast cancer
     Dosage: 200 MG, Q3W
     Route: 042
     Dates: start: 20230105
  4. CARBOPLATIN [Suspect]
     Active Substance: CARBOPLATIN
     Indication: Breast cancer
     Dosage: 1770 MG, QW (590 MG Q3W)
     Route: 042
     Dates: start: 20221216
  5. CARBOPLATIN [Suspect]
     Active Substance: CARBOPLATIN
     Dosage: 1770 MG, QW (590 MG Q3W)
     Route: 042
     Dates: start: 20230105
  6. PACLITAXEL [Suspect]
     Active Substance: PACLITAXEL
     Indication: Breast cancer
     Dosage: 200 MG, Q3W
     Route: 042
     Dates: start: 20221216
  7. PACLITAXEL [Suspect]
     Active Substance: PACLITAXEL
     Dosage: 290 MG, Q3W
     Route: 042
     Dates: start: 20221216

REACTIONS (2)
  - Hyperthyroidism [Unknown]
  - Inappropriate schedule of product administration [Unknown]

NARRATIVE: CASE EVENT DATE: 20230126
